FAERS Safety Report 18918564 (Version 2)
Quarter: 2021Q1

REPORT INFORMATION
  Report Type: Spontaneous
  Country: BR (occurrence: BR)
  Receive Date: 20210219
  Receipt Date: 20210224
  Transmission Date: 20210420
  Serious: Yes (Other)
  Sender: FDA-Public Use
  Company Number: BR-ABBVIE-21P-020-3780600-00

PATIENT
  Sex: Male

DRUGS (1)
  1. DEPAKOTE [Suspect]
     Active Substance: DIVALPROEX SODIUM
     Indication: PRODUCT USED FOR UNKNOWN INDICATION
     Dosage: DAILY DOSE 7 CAPSULE
     Route: 048

REACTIONS (3)
  - Seizure [Not Recovered/Not Resolved]
  - Product quality issue [Unknown]
  - Drug ineffective [Not Recovered/Not Resolved]
